FAERS Safety Report 10051702 (Version 2)
Quarter: 2014Q2

REPORT INFORMATION
  Report Type: Spontaneous
  Country: IE (occurrence: IE)
  Receive Date: 20140401
  Receipt Date: 20140429
  Transmission Date: 20141212
  Serious: Yes (Disabling, Other)
  Sender: FDA-Public Use
  Company Number: IE-PFIZER INC-2014088208

PATIENT
  Age: 61 Year
  Sex: Female
  Weight: 108 kg

DRUGS (8)
  1. LYRICA [Suspect]
     Indication: DEPRESSION
     Dosage: 75 MG, 2X/DAY
     Route: 048
     Dates: start: 201110, end: 201401
  2. CYMBALTA [Concomitant]
     Indication: DEPRESSION
     Dosage: 120 MG, UNK
     Route: 048
  3. COVERSYL ARGININE [Concomitant]
     Indication: HYPERTENSION
     Dosage: 10 MG, UNK
     Route: 048
     Dates: start: 20090220
  4. AVAMYS [Concomitant]
     Indication: RHINITIS
     Dosage: 2 DF, UNK (2 SPRAYS)
     Route: 045
     Dates: start: 20100115
  5. LANSOPRAZOLE [Concomitant]
     Indication: GASTROOESOPHAGEAL REFLUX DISEASE
     Dosage: 30 MG, UNK
     Route: 048
     Dates: start: 20111208
  6. ZOLPIDEM [Concomitant]
     Indication: INSOMNIA
     Dosage: 10 MG, UNK
     Route: 048
     Dates: start: 2011
  7. QUETIAPINE [Concomitant]
     Dosage: UNK
     Route: 048
     Dates: start: 2011
  8. OLANZAPINE [Concomitant]
     Dosage: UNK
     Route: 048
     Dates: start: 2011

REACTIONS (6)
  - Tooth loss [Not Recovered/Not Resolved]
  - Weight increased [Not Recovered/Not Resolved]
  - Dyspnoea [Not Recovered/Not Resolved]
  - Tooth discolouration [Not Recovered/Not Resolved]
  - Depression [Not Recovered/Not Resolved]
  - Loose tooth [Not Recovered/Not Resolved]
